FAERS Safety Report 6476505-9 (Version None)
Quarter: 2009Q4

REPORT INFORMATION
  Report Type: 
  Country: None (occurrence: None)
  Receive Date: 20091202
  Receipt Date: 20091119
  Transmission Date: 20100525
  Serious: Yes (Hospitalization)
  Sender: FDA-Public Use
  Company Number: PAR_03261_2009

PATIENT
  Age: 56 Year
  Sex: Male
  Weight: 76 kg

DRUGS (8)
  1. IBUPROFEN [Suspect]
     Indication: BONE PAIN
     Dosage: (400 MG BID ORAL)
     Route: 048
     Dates: start: 20090101, end: 20090911
  2. ASPIRIN [Suspect]
     Indication: MYOCARDIAL INFARCTION
     Dosage: (100 MG QD ORAL), (100 MG QD ORAL)
     Route: 048
     Dates: start: 19980101, end: 20090911
  3. ASPIRIN [Suspect]
     Indication: MYOCARDIAL INFARCTION
     Dosage: (100 MG QD ORAL), (100 MG QD ORAL)
     Route: 048
     Dates: start: 20090916
  4. ENALAPRIL MALEATE [Suspect]
  5. HYDROCHLOROTHIAZIDE [Concomitant]
  6. PANTOPRAZOLE SODIUM [Suspect]
  7. EZETIMIBE/SIMVASTATIN [Suspect]
  8. NEBIVOLOL HCL [Suspect]

REACTIONS (4)
  - ANXIETY [None]
  - COLD SWEAT [None]
  - COLITIS ISCHAEMIC [None]
  - ENTEROCOLITIS INFECTIOUS [None]
